FAERS Safety Report 11994848 (Version 13)
Quarter: 2022Q2

REPORT INFORMATION
  Report Type: Other
  Country: GB (occurrence: GB)
  Receive Date: 20160203
  Receipt Date: 20220513
  Transmission Date: 20220721
  Serious: Yes (Hospitalization, Other)
  Sender: FDA-Public Use
  Company Number: GB-ROCHE-1677596

PATIENT
  Age: 69 Year
  Sex: Female

DRUGS (27)
  1. PERTUZUMAB [Suspect]
     Active Substance: PERTUZUMAB
     Indication: Breast cancer metastatic
     Dosage: LOADING DOSE
     Route: 042
     Dates: start: 20151105
  2. PERTUZUMAB [Suspect]
     Active Substance: PERTUZUMAB
     Dosage: MAINTENANCE DOSE
     Route: 042
     Dates: start: 20151203
  3. TRASTUZUMAB [Suspect]
     Active Substance: TRASTUZUMAB
     Indication: Breast cancer metastatic
     Dosage: LOADING DOSE
     Route: 041
     Dates: start: 20151105, end: 20151105
  4. TRASTUZUMAB [Suspect]
     Active Substance: TRASTUZUMAB
     Dosage: MAINTENANCE DOSE
     Route: 042
     Dates: start: 20151203, end: 20180327
  5. TRASTUZUMAB [Suspect]
     Active Substance: TRASTUZUMAB
     Route: 042
     Dates: start: 20180518, end: 20190327
  6. DOCETAXEL [Suspect]
     Active Substance: DOCETAXEL
     Indication: Breast cancer metastatic
     Route: 042
     Dates: start: 20151106, end: 20151106
  7. PACLITAXEL [Suspect]
     Active Substance: PACLITAXEL
     Indication: Breast cancer metastatic
     Route: 042
     Dates: start: 20151203, end: 20160203
  8. PACLITAXEL [Suspect]
     Active Substance: PACLITAXEL
     Route: 042
     Dates: start: 20151210
  9. PACLITAXEL [Suspect]
     Active Substance: PACLITAXEL
     Route: 042
     Dates: start: 20160204, end: 20160218
  10. PACLITAXEL [Suspect]
     Active Substance: PACLITAXEL
     Route: 042
     Dates: start: 20160303, end: 20160310
  11. METOCLOPRAMIDE [Concomitant]
     Active Substance: METOCLOPRAMIDE
     Indication: Prophylaxis
     Route: 048
     Dates: start: 20151203
  12. RAMIPRIL [Concomitant]
     Active Substance: RAMIPRIL
     Route: 048
     Dates: start: 20170523
  13. DEXAMETHASONE [Concomitant]
     Active Substance: DEXAMETHASONE
     Indication: Prophylaxis
     Route: 048
     Dates: start: 20151105
  14. LOPERAMIDE [Concomitant]
     Active Substance: LOPERAMIDE
     Indication: Prophylaxis
     Dosage: 4 TABLET TWICE A DAY FOR 3 DAYS
     Route: 048
     Dates: start: 20151203
  15. EZETIMIBE [Concomitant]
     Active Substance: EZETIMIBE
     Route: 048
     Dates: start: 2019
  16. LANSOPRAZOLE [Concomitant]
     Active Substance: LANSOPRAZOLE
     Route: 048
     Dates: start: 20170312
  17. LORATADINE [Concomitant]
     Active Substance: LORATADINE
     Route: 048
     Dates: start: 20151119, end: 20151217
  18. CETIRIZINE [Concomitant]
     Active Substance: CETIRIZINE HYDROCHLORIDE
     Indication: Prophylaxis
     Dosage: 1 TABLET AT NIGHT FOR 3 DAYS
     Route: 048
     Dates: start: 20151203
  19. RANITIDINE [Concomitant]
     Active Substance: RANITIDINE
     Indication: Prophylaxis
     Dosage: 1 TABLET TWICE A DAY FOR 3 DAYS
     Route: 048
     Dates: start: 20151203
  20. CLOPIDOGREL [Concomitant]
     Active Substance: CLOPIDOGREL BISULFATE
     Route: 048
     Dates: start: 20170701
  21. ROSUVASTATIN CALCIUM [Concomitant]
     Active Substance: ROSUVASTATIN CALCIUM
  22. TRAMADOL HYDROCHLORIDE [Concomitant]
     Active Substance: TRAMADOL HYDROCHLORIDE
     Indication: Prophylaxis
     Route: 048
     Dates: start: 20151105
  23. ASPIRIN [Concomitant]
     Active Substance: ASPIRIN
     Route: 048
     Dates: start: 20170523, end: 20170701
  24. ROSUVASTATIN [Concomitant]
     Active Substance: ROSUVASTATIN
     Route: 048
     Dates: start: 201806, end: 201911
  25. ASPIRIN [Concomitant]
     Active Substance: ASPIRIN
  26. CHLORHEXIDINE GLUCONATE [Concomitant]
     Active Substance: CHLORHEXIDINE GLUCONATE
     Indication: Prophylaxis
     Dosage: MOUTHWASH
     Route: 048
     Dates: start: 20151105
  27. ATORVASTATIN [Concomitant]
     Active Substance: ATORVASTATIN
     Route: 048
     Dates: start: 20170701

REACTIONS (22)
  - Chest discomfort [Recovered/Resolved]
  - Hypersensitivity [Recovered/Resolved]
  - Erythema [Recovered/Resolved]
  - Neuropathy peripheral [Recovered/Resolved]
  - Dysuria [Recovered/Resolved]
  - Anaphylactic reaction [Recovered/Resolved]
  - Neuropathy peripheral [Recovered/Resolved]
  - Palmar erythema [Recovered/Resolved]
  - Tremor [Recovered/Resolved]
  - Mucosal inflammation [Recovered/Resolved]
  - Urosepsis [Recovered/Resolved]
  - Rash [Recovered/Resolved]
  - Tendonitis [Not Recovered/Not Resolved]
  - Hypertension [Recovered/Resolved]
  - Cystitis noninfective [Recovered/Resolved]
  - Defaecation urgency [Recovered/Resolved]
  - Bacterial test positive [Recovered/Resolved]
  - Malaise [Recovered/Resolved]
  - Diarrhoea [Recovered/Resolved]
  - Urinary tract infection [Recovered/Resolved]
  - Dyspnoea [Recovered/Resolved]
  - Fatigue [Recovered/Resolved]

NARRATIVE: CASE EVENT DATE: 20151201
